FAERS Safety Report 18097505 (Version 1)
Quarter: 2020Q3

REPORT INFORMATION
  Report Type: Spontaneous
  Country: US (occurrence: US)
  Receive Date: 20200731
  Receipt Date: 20200731
  Transmission Date: 20201103
  Serious: Yes (Disabling)
  Sender: FDA-Public Use
  Company Number: None

PATIENT
  Age: 61 Year
  Sex: Female
  Weight: 58.95 kg

DRUGS (10)
  1. DOTERRA ESSENTIAL OILS [Concomitant]
  2. FISH OIL [Concomitant]
     Active Substance: FISH OIL
  3. TOPIRAMATE TABS 25 MG [Suspect]
     Active Substance: TOPIRAMATE
     Indication: MIGRAINE
     Dosage: ?          QUANTITY:1 TABLET(S);?
     Route: 048
     Dates: start: 20191126, end: 20200721
  4. NEXIUM [Concomitant]
     Active Substance: ESOMEPRAZOLE MAGNESIUM
  5. PLAQUENIL [Concomitant]
     Active Substance: HYDROXYCHLOROQUINE SULFATE
  6. AVAPRO [Concomitant]
     Active Substance: IRBESARTAN
  7. SINGULAIR [Concomitant]
     Active Substance: MONTELUKAST SODIUM
  8. CELEBREX [Concomitant]
     Active Substance: CELECOXIB
  9. LASIX [Concomitant]
     Active Substance: FUROSEMIDE
  10. PROAIR?HFA INHALER [Concomitant]

REACTIONS (5)
  - Depression [None]
  - Diarrhoea [None]
  - Alopecia [None]
  - Emotional disorder [None]
  - Crying [None]

NARRATIVE: CASE EVENT DATE: 20200720
